FAERS Safety Report 6410712-6 (Version None)
Quarter: 2009Q4

REPORT INFORMATION
  Report Type: 
  Country: None (occurrence: None)
  Receive Date: 20091022
  Receipt Date: 20091009
  Transmission Date: 20100525
  Serious: Yes (Other)
  Sender: FDA-Public Use
  Company Number: PL-ROCHE-662781

PATIENT
  Age: 51 Year
  Sex: Male

DRUGS (9)
  1. ENFUVIRTIDE [Suspect]
     Route: 065
     Dates: start: 20020715
  2. NELFINAVIR MESYLATE [Suspect]
     Route: 065
     Dates: start: 20020115
  3. SAQUINAVIR [Suspect]
     Dosage: DRUG NAME: SEQUINAVIR
     Route: 065
     Dates: start: 20020715
  4. ZIDOVUDINE [Concomitant]
     Dates: start: 20020715
  5. LAMIVUDINE [Concomitant]
     Dates: start: 20020715
  6. STAVUDINE [Concomitant]
     Dates: start: 20020715
  7. LOPINAVIR [Concomitant]
     Dates: start: 20020715
  8. FOSAMPRENAVIR [Concomitant]
     Dates: start: 20020715
  9. RITONAVIR [Concomitant]
     Dates: start: 20020715

REACTIONS (1)
  - LUNG NEOPLASM MALIGNANT [None]
